FAERS Safety Report 5108911-9 (Version None)
Quarter: 2006Q3

REPORT INFORMATION
  Report Type: 
  Country: None (occurrence: None)
  Receive Date: 20060915
  Receipt Date: 20060915
  Transmission Date: 20061208
  Serious: Yes (Hospitalization)
  Sender: FDA-Public Use
  Company Number: None

PATIENT
  Sex: Female
  Weight: 65.7 kg

DRUGS (2)
  1. CISPLATIN [Suspect]
     Dosage: 90 MG
  2. NAVELBINE [Suspect]
     Dosage: SEE IMAGE

REACTIONS (4)
  - HAEMOGLOBIN DECREASED [None]
  - NEUTROPENIA [None]
  - PYREXIA [None]
  - WHITE BLOOD CELL COUNT DECREASED [None]
